FAERS Safety Report 15205584 (Version 1)
Quarter: 2018Q3

REPORT INFORMATION
  Report Type: Spontaneous
  Country: JP (occurrence: JP)
  Receive Date: 20180726
  Receipt Date: 20180726
  Transmission Date: 20181010
  Serious: Yes (Hospitalization, Other)
  Sender: FDA-Public Use
  Company Number: JP-GLAXOSMITHKLINE-JP2018JPN132059

PATIENT
  Age: 79 Year
  Sex: Female

DRUGS (1)
  1. FLUTIDE DISKUS [Suspect]
     Active Substance: FLUTICASONE PROPIONATE
     Dosage: 200 ?G, QD (IN THE MORNING)
     Route: 055

REACTIONS (3)
  - Hospitalisation [Unknown]
  - Product use issue [Unknown]
  - Inappropriate schedule of drug administration [Unknown]
